FAERS Safety Report 7005648-6 (Version None)
Quarter: 2010Q3

REPORT INFORMATION
  Report Type: 
  Country: None (occurrence: None)
  Receive Date: 20100921
  Receipt Date: 20100913
  Transmission Date: 20110219
  Serious: Yes (Death)
  Sender: FDA-Public Use
  Company Number: B0290968A

PATIENT
  Age: 67 Year
  Sex: Male

DRUGS (4)
  1. AVANDIA [Suspect]
     Dosage: 4MG UNKNOWN
     Route: 048
     Dates: start: 20010928, end: 20011121
  2. DIAMICRON [Suspect]
     Indication: DIABETES MELLITUS
     Dosage: 1TAB TWICE PER DAY
     Route: 048
     Dates: start: 20011005
  3. GLUCOPHAGE [Concomitant]
  4. GLIMEPIRIDE [Concomitant]

REACTIONS (3)
  - AORTIC VALVE STENOSIS [None]
  - CARDIOMYOPATHY [None]
  - MITRAL VALVE STENOSIS [None]
